FAERS Safety Report 8320495-0 (Version None)
Quarter: 2012Q2

REPORT INFORMATION
  Report Type: 
  Country: None (occurrence: None)
  Receive Date: 20120427
  Receipt Date: 20120427
  Transmission Date: 20120825
  Serious: Yes (Life-Threatening, Hospitalization, Disabling)
  Sender: FDA-Public Use
  Company Number: None

PATIENT
  Age: 41 Year
  Sex: Male
  Weight: 106 kg

DRUGS (2)
  1. LISINOPRIL [Concomitant]
     Route: 048
  2. PHENTERMINE [Suspect]
     Indication: WEIGHT CONTROL
     Dosage: 30 MG
     Route: 048
     Dates: start: 20120422, end: 20120423

REACTIONS (11)
  - PALPITATIONS [None]
  - LOSS OF CONSCIOUSNESS [None]
  - BLOOD PRESSURE INCREASED [None]
  - CORONARY ARTERY OCCLUSION [None]
  - SINUS TACHYCARDIA [None]
  - ISCHAEMIC CARDIOMYOPATHY [None]
  - LEFT VENTRICULAR END-DIASTOLIC PRESSURE INCREASED [None]
  - CARDIAC ARREST [None]
  - OXYGEN SATURATION DECREASED [None]
  - CORONARY ARTERY DISEASE [None]
  - VENTRICULAR FIBRILLATION [None]
